FAERS Safety Report 20145241 (Version 1)
Quarter: 2021Q4

REPORT INFORMATION
  Report Type: Spontaneous
  Country: RU (occurrence: None)
  Receive Date: 20211203
  Receipt Date: 20211203
  Transmission Date: 20220304
  Serious: Yes (Hospitalization, Other)
  Sender: FDA-Public Use
  Company Number: 2021A850562

PATIENT
  Age: 72 Year
  Sex: Female

DRUGS (7)
  1. LYNPARZA [Suspect]
     Active Substance: OLAPARIB
     Indication: Ovarian cancer
     Dosage: 8 CAPSULES TWICE A DAY (800MG/DAY)
     Route: 048
     Dates: start: 202101, end: 202105
  2. LYNPARZA [Suspect]
     Active Substance: OLAPARIB
     Indication: Metastases to abdominal cavity
     Dosage: 8 CAPSULES TWICE A DAY (800MG/DAY)
     Route: 048
     Dates: start: 202101, end: 202105
  3. LYNPARZA [Suspect]
     Active Substance: OLAPARIB
     Indication: Ovarian cancer
     Route: 048
     Dates: start: 202105
  4. LYNPARZA [Suspect]
     Active Substance: OLAPARIB
     Indication: Metastases to abdominal cavity
     Route: 048
     Dates: start: 202105
  5. XARELTO [Suspect]
     Active Substance: RIVAROXABAN
     Indication: Anticoagulant therapy
     Dosage: 10.0MG UNKNOWN
     Route: 065
     Dates: start: 202104, end: 202109
  6. FERRUM LEK [Concomitant]
     Route: 065
  7. UNSPECIFIED INGREDIENT [Concomitant]
     Active Substance: UNSPECIFIED INGREDIENT
     Indication: Blood pressure abnormal

REACTIONS (6)
  - COVID-19 [Recovered/Resolved]
  - Syncope [Unknown]
  - Haemoglobin decreased [Recovering/Resolving]
  - Cerebrovascular accident [Recovered/Resolved]
  - Platelet count decreased [Recovering/Resolving]
  - Red blood cell count decreased [Recovering/Resolving]

NARRATIVE: CASE EVENT DATE: 20210401
